FAERS Safety Report 6135401-7 (Version None)
Quarter: 2009Q1

REPORT INFORMATION
  Report Type: 
  Country: None (occurrence: None)
  Receive Date: 20090327
  Receipt Date: 20090320
  Transmission Date: 20090719
  Serious: Yes (Other)
  Sender: FDA-Public Use
  Company Number: US-ELI_LILLY_AND_COMPANY-US200902004493

PATIENT
  Sex: Female
  Weight: 90.703 kg

DRUGS (8)
  1. BYETTA [Suspect]
     Indication: TYPE 2 DIABETES MELLITUS
     Dosage: 10 G, 2/D
     Dates: start: 20060601, end: 20080919
  2. METFORMIN [Concomitant]
     Indication: TYPE 2 DIABETES MELLITUS
     Dosage: 1 G, 2/D
     Route: 048
     Dates: start: 20030801
  3. GLIMEPIRIDE [Concomitant]
     Indication: TYPE 2 DIABETES MELLITUS
     Dosage: 4 MG, 2/D
     Route: 048
     Dates: start: 20070901
  4. LANTUS [Concomitant]
     Indication: TYPE 2 DIABETES MELLITUS
     Dosage: 40 U, EACH MORNING
     Route: 058
     Dates: start: 20050901
  5. DIOVAN [Concomitant]
     Indication: HYPERTENSION
     Dosage: 160 MG, 2/D
     Dates: start: 20050701
  6. LIPITOR [Concomitant]
     Indication: LIPIDS INCREASED
     Dosage: 10 MG, DAILY (1/D)
     Route: 048
     Dates: start: 20030801
  7. FUROSEMIDE [Concomitant]
     Indication: OEDEMA
     Dosage: 80 MG, DAILY (1/D)
     Route: 048
     Dates: start: 20030801
  8. ENALAPRIL [Concomitant]
     Indication: HYPERTENSION
     Dosage: 40 MG, DAILY (1/D)
     Route: 048
     Dates: start: 20030801

REACTIONS (4)
  - BLOOD PRESSURE DECREASED [None]
  - PANCREATITIS [None]
  - SHOCK [None]
  - WEIGHT DECREASED [None]
